FAERS Safety Report 23893365 (Version 1)
Quarter: 2024Q2

REPORT INFORMATION
  Report Type: Spontaneous
  Country: US (occurrence: None)
  Receive Date: 20240524
  Receipt Date: 20240524
  Transmission Date: 20240716
  Serious: No
  Sender: FDA-Public Use
  Company Number: US-ROCHE-3437970

PATIENT
  Age: 75 Year
  Sex: Female
  Weight: 47.67 kg

DRUGS (10)
  1. ACTEMRA [Suspect]
     Active Substance: TOCILIZUMAB
     Indication: Rheumatoid arthritis
     Dosage: 0.9 CC PER DOSE EVERY OTHER WEEK ;ONGOING: YES
     Route: 058
  2. ACTEMRA [Suspect]
     Active Substance: TOCILIZUMAB
  3. ACTEMRA [Suspect]
     Active Substance: TOCILIZUMAB
  4. ACTEMRA [Suspect]
     Active Substance: TOCILIZUMAB
     Indication: Rheumatoid arthritis
     Dosage: STRENGTH: 162MG/0.9M
     Route: 058
     Dates: start: 202207
  5. ACTEMRA [Suspect]
     Active Substance: TOCILIZUMAB
  6. ACTEMRA [Suspect]
     Active Substance: TOCILIZUMAB
     Route: 058
  7. ACTEMRA [Suspect]
     Active Substance: TOCILIZUMAB
  8. METHOTREXATE [Concomitant]
     Active Substance: METHOTREXATE
  9. TERBUTALINE SULFATE [Concomitant]
     Active Substance: TERBUTALINE SULFATE
  10. THEO-24 [Concomitant]
     Active Substance: THEOPHYLLINE ANHYDROUS

REACTIONS (8)
  - Product dose omission issue [Unknown]
  - Exposure via skin contact [Unknown]
  - Device breakage [Unknown]
  - Device issue [Unknown]
  - Wrong technique in product usage process [Unknown]
  - Product packaging quantity issue [Unknown]
  - Device malfunction [Unknown]
  - No adverse event [Unknown]

NARRATIVE: CASE EVENT DATE: 20231010
